FAERS Safety Report 12997957 (Version 3)
Quarter: 2018Q4

REPORT INFORMATION
  Report Type: Spontaneous
  Country: US (occurrence: US)
  Receive Date: 20161205
  Receipt Date: 20181120
  Transmission Date: 20190204
  Serious: Yes (Other)
  Sender: FDA-Public Use
  Company Number: US-JNJFOC-20161128419

PATIENT
  Age: 89 Year
  Sex: Male

DRUGS (20)
  1. DICLOFENAC SODIUM. [Concomitant]
     Active Substance: DICLOFENAC SODIUM
     Route: 062
  2. NORCO [Concomitant]
     Active Substance: ACETAMINOPHEN\HYDROCODONE BITARTRATE
  3. CYMBALTA [Concomitant]
     Active Substance: DULOXETINE HYDROCHLORIDE
  4. ONDANSETRON HCL [Concomitant]
     Active Substance: ONDANSETRON HYDROCHLORIDE
  5. ATIVAN [Concomitant]
     Active Substance: LORAZEPAM
  6. MORPHINE [Concomitant]
     Active Substance: MORPHINE
  7. NITROSTAT [Concomitant]
     Active Substance: NITROGLYCERIN
     Route: 060
  8. OMEPRAZOLE. [Concomitant]
     Active Substance: OMEPRAZOLE
  9. VOLTAREN [Concomitant]
     Active Substance: DICLOFENAC SODIUM
     Route: 061
  10. LIPITOR [Concomitant]
     Active Substance: ATORVASTATIN CALCIUM
  11. MORPHINE [Concomitant]
     Active Substance: MORPHINE
  12. SENNA ALEXANDRINA [Concomitant]
     Active Substance: SENNA LEAF
  13. NORCO [Concomitant]
     Active Substance: ACETAMINOPHEN\HYDROCODONE BITARTRATE
  14. IMBRUVICA [Suspect]
     Active Substance: IBRUTINIB
     Indication: CHRONIC LYMPHOCYTIC LEUKAEMIA
     Route: 048
     Dates: start: 201610, end: 2016
  15. LASIX [Concomitant]
     Active Substance: FUROSEMIDE
  16. LOPRESSOR HCT [Concomitant]
     Active Substance: HYDROCHLOROTHIAZIDE\METOPROLOL TARTRATE
     Dosage: 50 MG-25 MG
  17. PROCHLORPERAZINE MALEATE. [Concomitant]
     Active Substance: PROCHLORPERAZINE MALEATE
  18. IMBRUVICA [Suspect]
     Active Substance: IBRUTINIB
     Indication: CHRONIC LYMPHOCYTIC LEUKAEMIA
     Route: 048
  19. IMBRUVICA [Suspect]
     Active Substance: IBRUTINIB
     Indication: CHRONIC LYMPHOCYTIC LEUKAEMIA
     Route: 048
     Dates: start: 20161116
  20. MORPHINE [Concomitant]
     Active Substance: MORPHINE

REACTIONS (22)
  - Anaemia [Unknown]
  - Fatigue [Unknown]
  - Inappropriate schedule of product administration [Unknown]
  - Depression [Unknown]
  - Oedema peripheral [Unknown]
  - Nausea [Unknown]
  - Off label use [Recovered/Resolved]
  - Bone pain [Recovered/Resolved]
  - Incontinence [Unknown]
  - Lymphocyte count decreased [Unknown]
  - Asthenia [Unknown]
  - Dyspepsia [Unknown]
  - Thrombocytopenia [Unknown]
  - Arthralgia [Not Recovered/Not Resolved]
  - Contusion [Unknown]
  - Infection [Unknown]
  - Cough [Unknown]
  - Anxiety [Unknown]
  - Tooth disorder [Unknown]
  - Hot flush [Unknown]
  - Incorrect dose administered [Recovered/Resolved]
  - Myalgia [Unknown]

NARRATIVE: CASE EVENT DATE: 201611
